FAERS Safety Report 17264331 (Version 1)
Quarter: 2020Q1

REPORT INFORMATION
  Report Type: Report from Study
  Country: US (occurrence: US)
  Receive Date: 20200113
  Receipt Date: 20200113
  Transmission Date: 20200409
  Serious: Yes (Death)
  Sender: FDA-Public Use
  Company Number: US-PFIZER INC-2019458649

PATIENT
  Age: 82 Year
  Sex: Female

DRUGS (2)
  1. FASLODEX [Suspect]
     Active Substance: FULVESTRANT
     Dosage: UNK, MONTHLY
  2. IBRANCE [Suspect]
     Active Substance: PALBOCICLIB
     Indication: BREAST CANCER METASTATIC
     Dosage: 100 MG, CYCLIC (DAILY FOR 21 DAYS OF A 28 DAY CYCLE)
     Route: 048
     Dates: start: 20191015, end: 202001

REACTIONS (10)
  - Liver disorder [Fatal]
  - Infection [Fatal]
  - Blood calcium decreased [Not Recovered/Not Resolved]
  - Blood count abnormal [Not Recovered/Not Resolved]
  - Musculoskeletal pain [Unknown]
  - Dehydration [Recovered/Resolved]
  - Pain in extremity [Unknown]
  - Tremor [Recovered/Resolved]
  - Back pain [Unknown]
  - Dizziness [Recovered/Resolved]

NARRATIVE: CASE EVENT DATE: 2019
